FAERS Safety Report 8906746 (Version 1)
Quarter: 2012Q4

REPORT INFORMATION
  Report Type: 
  Country: FR (occurrence: FR)
  Receive Date: 20121114
  Receipt Date: 20121114
  Transmission Date: 20130627
  Serious: Yes (Hospitalization, Other)
  Sender: FDA-Public Use
  Company Number: FR-BRISTOL-MYERS SQUIBB COMPANY-17109398

PATIENT
  Age: 88 Year
  Sex: Female

DRUGS (10)
  1. COUMADINE [Suspect]
     Indication: ISCHAEMIC STROKE
     Dates: start: 201203, end: 201205
  2. CORDARONE [Concomitant]
  3. LASILIX [Concomitant]
     Dosage: 1 df = 40 uns
  4. DOLIPRANE [Concomitant]
  5. PRITOR [Concomitant]
     Dosage: 1 df = 80 uns
  6. HYDROCORTISONE [Concomitant]
  7. LEVOTHYROX [Concomitant]
     Dosage: 1 df = 100 uns
  8. EFFEXOR [Concomitant]
     Dosage: 1 df = 37.5 uns
  9. NOCTAMIDE [Concomitant]
  10. LEXOMIL [Concomitant]

REACTIONS (4)
  - Haematoma [Recovered/Resolved]
  - Haemothorax [Recovered/Resolved]
  - Fall [Unknown]
  - Rib fracture [Unknown]
